FAERS Safety Report 12475644 (Version 4)
Quarter: 2016Q3

REPORT INFORMATION
  Report Type: Spontaneous
  Country: US (occurrence: US)
  Receive Date: 20160617
  Receipt Date: 20160922
  Transmission Date: 20161109
  Serious: Yes (Other)
  Sender: FDA-Public Use
  Company Number: US-SHIRE-US201607322

PATIENT
  Age: 75 Year
  Sex: Male
  Weight: 61.22 kg

DRUGS (7)
  1. LIALDA [Suspect]
     Active Substance: MESALAMINE
     Indication: DIARRHOEA
     Dosage: 2.4 G (TWO 1.2 G TABLETS), 1X/DAY:QD
     Route: 048
     Dates: start: 201506, end: 2015
  2. LIALDA [Suspect]
     Active Substance: MESALAMINE
     Indication: GASTROINTESTINAL INFLAMMATION
  3. LIALDA [Suspect]
     Active Substance: MESALAMINE
     Dosage: 4.8 MG, 1X/DAY:QD
     Route: 048
  4. LIALDA [Suspect]
     Active Substance: MESALAMINE
     Indication: DIARRHOEA
     Dosage: 3.6 G (THREE 1.2 G  TABLETS), 1X/DAY:QD
     Route: 048
     Dates: start: 2015
  5. LIALDA [Suspect]
     Active Substance: MESALAMINE
     Dosage: 2.4 G (TWO 1.2 G TABLETS), 2X/DAY:BID (BREAKFAST AND DINNER)
     Route: 048
     Dates: start: 20160123, end: 20160210
  6. LIALDA [Suspect]
     Active Substance: MESALAMINE
     Dosage: 2.4 G, 1X/DAY:QD (DINNER)
     Route: 048
     Dates: start: 20160401
  7. URSODIOL. [Concomitant]
     Active Substance: URSODIOL
     Indication: BILIARY CIRRHOSIS PRIMARY
     Dosage: 300 MG, 2X/DAY:BID
     Route: 048

REACTIONS (7)
  - Diarrhoea [Not Recovered/Not Resolved]
  - Gastrointestinal inflammation [Not Recovered/Not Resolved]
  - Pruritus [Recovered/Resolved]
  - Crohn^s disease [Not Recovered/Not Resolved]
  - Product use issue [Not Recovered/Not Resolved]
  - Inappropriate schedule of drug administration [Recovered/Resolved]
  - Colitis ulcerative [Not Recovered/Not Resolved]

NARRATIVE: CASE EVENT DATE: 201506
